FAERS Safety Report 9989303 (Version 2)
Quarter: 2014Q1

REPORT INFORMATION
  Report Type: Spontaneous
  Country: US (occurrence: US)
  Receive Date: 20140310
  Receipt Date: 20140310
  Transmission Date: 20141002
  Serious: Yes (Hospitalization)
  Sender: FDA-Public Use
  Company Number: US-SA-FABR-1003276

PATIENT
  Age: 31 Year
  Sex: Male
  Weight: 90 kg

DRUGS (11)
  1. FABRAZYME [Suspect]
     Indication: FABRY^S DISEASE
     Dosage: 1 MG/KG, Q2W
     Route: 042
     Dates: start: 20111031
  2. FABRAZYME [Suspect]
     Indication: FABRY^S DISEASE
     Dosage: 1 MG/KG, Q2W
     Route: 042
     Dates: start: 20111031
  3. FABRAZYME [Suspect]
     Indication: FABRY^S DISEASE
     Dosage: 1 MG/KG, Q2W
     Route: 042
     Dates: start: 20111031
  4. AMLODIPINE [Concomitant]
     Indication: HYPERTENSION
     Dates: start: 2010
  5. AMLODIPINE [Concomitant]
     Indication: HYPERTENSION
  6. CALCIUM ACETATE [Concomitant]
     Dosage: 2 DF, QD
     Dates: start: 2012
  7. COLECALCIFEROL [Concomitant]
     Indication: VITAMIN D DEFICIENCY
     Dosage: 1 DF, QD
     Dates: start: 2010
  8. COLECALCIFEROL [Concomitant]
     Indication: VITAMIN D DEFICIENCY
     Dosage: DOSE:2000 UNIT(S)
  9. METOPROLOL [Concomitant]
     Indication: HYPERTENSION
     Dosage: 2 DF, QD
     Dates: start: 2011
  10. METOPROLOL [Concomitant]
     Indication: HYPERTENSION
  11. SODIUM BICARBONATE [Concomitant]
     Dosage: 2 DF, QD
     Dates: start: 2012

REACTIONS (1)
  - Arteriovenous fistula thrombosis [Unknown]
